FAERS Safety Report 13381892 (Version 1)
Quarter: 2017Q1

REPORT INFORMATION
  Report Type: Spontaneous
  Country: US (occurrence: US)
  Receive Date: 20170329
  Receipt Date: 20170329
  Transmission Date: 20170429
  Serious: No
  Sender: FDA-Public Use
  Company Number: None

PATIENT
  Age: 62 Year
  Sex: Male
  Weight: 101 kg

DRUGS (2)
  1. ZOLADEX [Suspect]
     Active Substance: GOSERELIN ACETATE
     Dates: end: 20121203
  2. CASODEX [Suspect]
     Active Substance: BICALUTAMIDE
     Dates: end: 20130104

REACTIONS (3)
  - Hydroureter [None]
  - Hydronephrosis [None]
  - Radiation fibrosis [None]

NARRATIVE: CASE EVENT DATE: 20141212
